FAERS Safety Report 19983098 (Version 1)
Quarter: 2021Q4

REPORT INFORMATION
  Report Type: Spontaneous
  Country: US (occurrence: US)
  Receive Date: 20211021
  Receipt Date: 20211021
  Transmission Date: 20220303
  Serious: Yes (Life-Threatening, Hospitalization)
  Sender: FDA-Public Use
  Company Number: None

PATIENT
  Age: 63 Year
  Sex: Female
  Weight: 63 kg

DRUGS (1)
  1. BOTOX [Suspect]
     Active Substance: ONABOTULINUMTOXINA
     Indication: Hemiparesis
     Dosage: ?          OTHER FREQUENCY:ONCE;
     Route: 030
     Dates: start: 20211019, end: 20211019

REACTIONS (4)
  - Mental status changes [None]
  - Respiratory distress [None]
  - Toxic shock syndrome [None]
  - Infection [None]

NARRATIVE: CASE EVENT DATE: 20211020
